FAERS Safety Report 17011655 (Version 3)
Quarter: 2019Q4

REPORT INFORMATION
  Report Type: Spontaneous
  Country: JP (occurrence: JP)
  Receive Date: 20191108
  Receipt Date: 20191128
  Transmission Date: 20200122
  Serious: Yes (Hospitalization)
  Sender: FDA-Public Use
  Company Number: JP-FERRINGPH-2019FE07238

PATIENT

DRUGS (1)
  1. MINIRINMELT [Suspect]
     Active Substance: DESMOPRESSIN ACETATE
     Indication: NOCTURIA
     Dosage: UNK
     Route: 048

REACTIONS (4)
  - Urinary retention [Unknown]
  - Hyponatraemia [Recovered/Resolved]
  - Altered state of consciousness [Unknown]
  - Product use in unapproved indication [Unknown]
